FAERS Safety Report 4609082-5 (Version None)
Quarter: 2005Q1

REPORT INFORMATION
  Report Type: 
  Country: None (occurrence: None)
  Receive Date: 20050311
  Receipt Date: 20050222
  Transmission Date: 20050727
  Serious: No
  Sender: FDA-Public Use
  Company Number: CAR_0003_2004

PATIENT
  Age: 66 Year
  Sex: Female
  Weight: 67.1324 kg

DRUGS (4)
  1. DICLOFENAC [Suspect]
     Indication: ARTHRITIS
     Dosage: 75 MG BID PO
     Route: 048
     Dates: start: 20041215, end: 20041216
  2. FOSAMAX [Concomitant]
  3. PREVACID [Concomitant]
  4. ASPIRIN [Concomitant]

REACTIONS (5)
  - DRUG HYPERSENSITIVITY [None]
  - FLUID RETENTION [None]
  - GASTROINTESTINAL HAEMORRHAGE [None]
  - LOSS OF CONSCIOUSNESS [None]
  - PHARMACEUTICAL PRODUCT COMPLAINT [None]
